FAERS Safety Report 9305485 (Version 1)
Quarter: 2013Q2

REPORT INFORMATION
  Report Type: Spontaneous
  Country: US (occurrence: US)
  Receive Date: 20130523
  Receipt Date: 20130523
  Transmission Date: 20140414
  Serious: No
  Sender: FDA-Public Use
  Company Number: US-009507513-1305USA013490

PATIENT
  Age: 79 Year
  Sex: Female

DRUGS (2)
  1. DULERA [Suspect]
     Indication: ASTHMA
     Dosage: 200 MCG/ 5 MCG, 2 DF, BID
     Route: 055
     Dates: start: 201208
  2. ALLEGRA [Concomitant]

REACTIONS (3)
  - Pulmonary congestion [Not Recovered/Not Resolved]
  - Incorrect dose administered [Unknown]
  - Product quality issue [Unknown]
